FAERS Safety Report 11654161 (Version 2)
Quarter: 2015Q4

REPORT INFORMATION
  Report Type: Spontaneous
  Country: IT (occurrence: IT)
  Receive Date: 20151023
  Receipt Date: 20151028
  Transmission Date: 20160304
  Serious: Yes (Other)
  Sender: FDA-Public Use
  Company Number: IT-ACCORD-034511

PATIENT
  Age: 39 Year
  Sex: Female

DRUGS (4)
  1. QUETIAPINE [Suspect]
     Active Substance: QUETIAPINE
     Indication: BIPOLAR DISORDER
     Route: 048
  2. ZUCLOPENTHIXOL [Suspect]
     Active Substance: ZUCLOPENTHIXOL
     Indication: BIPOLAR DISORDER
     Route: 030
  3. LORAZEPAM. [Suspect]
     Active Substance: LORAZEPAM
     Indication: BIPOLAR DISORDER
     Route: 048
  4. LITHIUM. [Suspect]
     Active Substance: LITHIUM
     Indication: BIPOLAR DISORDER
     Route: 048

REACTIONS (6)
  - Electrocardiogram QT prolonged [Recovering/Resolving]
  - Hypothyroidism [Unknown]
  - Metabolic disorder [Recovering/Resolving]
  - Cotard^s syndrome [Recovering/Resolving]
  - Obesity [Recovering/Resolving]
  - Extrapyramidal disorder [Recovering/Resolving]
